FAERS Safety Report 21984808 (Version 1)
Quarter: 2023Q1

REPORT INFORMATION
  Report Type: Other
  Country: None (occurrence: IT)
  Receive Date: 20230213
  Receipt Date: 20230213
  Transmission Date: 20230418
  Serious: Yes (Hospitalization, Other)
  Sender: FDA-Public Use
  Company Number: IT-Spectra Medical Devices, LLC-2137838

PATIENT
  Age: 35 Year
  Sex: Female

DRUGS (2)
  1. SODIUM CHLORIDE [Suspect]
     Active Substance: SODIUM CHLORIDE
     Indication: Product used for unknown indication
     Route: 065
  2. DEXAMETHASONE [Suspect]
     Active Substance: DEXAMETHASONE
     Route: 065

REACTIONS (3)
  - Cardiac failure [Recovered/Resolved]
  - Hypervolaemia [Recovered/Resolved]
  - Maternal exposure during pregnancy [Unknown]
